FAERS Safety Report 4783069-4 (Version None)
Quarter: 2005Q3

REPORT INFORMATION
  Report Type: 
  Country: None (occurrence: None)
  Receive Date: 20050928
  Receipt Date: 20050928
  Transmission Date: 20060218
  Serious: Yes (Hospitalization)
  Sender: FDA-Public Use
  Company Number: None

PATIENT
  Age: 62 Year
  Sex: Male
  Weight: 46.7 kg

DRUGS (14)
  1. AMPICILLIN 2GRAMS [Suspect]
     Indication: INFECTION
     Dosage: 2GRAMS EVERY 4 HOURS IV
     Route: 042
     Dates: start: 20050712, end: 20050720
  2. CEFTRIAXONE 2GRAMS [Suspect]
     Dosage: 2GRAMS EVERY 12 HOURS IV
     Route: 042
  3. ALLOPURINOL [Concomitant]
  4. BACLOFEN [Concomitant]
  5. CLOPIDOGREL BISULFATE [Concomitant]
  6. COLCHICINE [Concomitant]
  7. FELODIPINE [Concomitant]
  8. IBUPROFEN [Concomitant]
  9. OMEPRAZOLE [Concomitant]
  10. SERTRALINE HCL [Concomitant]
  11. SIMVASTATIN [Concomitant]
  12. METOPROLOL TARTRATE [Concomitant]
  13. NICOTINE [Concomitant]
  14. VANCOMYCIN HCL [Concomitant]

REACTIONS (5)
  - DRUG EFFECT DECREASED [None]
  - PALLOR [None]
  - PRURITUS [None]
  - RASH MACULO-PAPULAR [None]
  - RASH MORBILLIFORM [None]
